FAERS Safety Report 9556115 (Version 1)
Quarter: 2013Q3

REPORT INFORMATION
  Report Type: Spontaneous
  Country: GB (occurrence: None)
  Receive Date: 20130924
  Receipt Date: 20130924
  Transmission Date: 20140515
  Serious: Yes (Other)
  Sender: FDA-Public Use
  Company Number: GER/UKI/13/0034531

PATIENT
  Age: 44 Year
  Sex: Female

DRUGS (2)
  1. SERTRALINE (SERTRALINE HYDROCHLORIDE) [Suspect]
     Indication: ANXIETY
  2. SERTRALINE (SERTRALINE HYDROCHLORIDE) [Suspect]
     Indication: STRESS

REACTIONS (2)
  - Tinnitus [None]
  - Hypoacusis [None]
